FAERS Safety Report 13322879 (Version 1)
Quarter: 2017Q1

REPORT INFORMATION
  Report Type: Spontaneous
  Country: US (occurrence: US)
  Receive Date: 20170309
  Receipt Date: 20170309
  Transmission Date: 20170428
  Serious: Yes (Other)
  Sender: FDA-Public Use
  Company Number: US-ASTRAZENECA-2017SE23465

PATIENT
  Age: 28550 Day
  Sex: Female
  Weight: 70.3 kg

DRUGS (25)
  1. BEVESPI AEROSPHERE [Suspect]
     Active Substance: FORMOTEROL FUMARATE\GLYCOPYRROLATE
     Indication: CHRONIC OBSTRUCTIVE PULMONARY DISEASE
     Dosage: 9 MCG/4.8 MCG 2 PUFFS TWICE A DAY
     Route: 055
     Dates: start: 20170228
  2. ALPRAZOLAM. [Concomitant]
     Active Substance: ALPRAZOLAM
     Indication: AFFECTIVE DISORDER
     Dosage: 0.5 MG 3 TIMES A DAY BUT ONLY TAKES AT BEDTIME
     Route: 048
     Dates: start: 2015
  3. LUNESTA [Concomitant]
     Active Substance: ESZOPICLONE
     Indication: SLEEP DISORDER
     Route: 048
     Dates: start: 2016
  4. VALSARTAN HCTZ [Concomitant]
     Active Substance: HYDROCHLOROTHIAZIDE\VALSARTAN
     Indication: HYPERTENSION
     Dosage: 160-25 MG DAILY
     Route: 048
  5. DEXILANT [Concomitant]
     Active Substance: DEXLANSOPRAZOLE
     Indication: GASTROOESOPHAGEAL REFLUX DISEASE
     Route: 048
  6. LOMOTIL [Concomitant]
     Active Substance: ATROPINE SULFATE\DIPHENOXYLATE HYDROCHLORIDE
     Indication: IRRITABLE BOWEL SYNDROME
     Dosage: 2.5 - 0.025 MG, THREE TIMES A DAY
     Route: 048
  7. IMITREX [Concomitant]
     Active Substance: SUMATRIPTAN SUCCINATE
     Indication: MIGRAINE
     Dosage: 6 MG/0.5 MG IN HER THIGH, AS REQUIRED
     Route: 030
  8. BENTYL [Concomitant]
     Active Substance: DICYCLOMINE HYDROCHLORIDE
     Indication: IRRITABLE BOWEL SYNDROME
     Route: 048
  9. ASPIRIN OTC [Concomitant]
     Indication: MYOCARDIAL INFARCTION
  10. LYRICA [Concomitant]
     Active Substance: PREGABALIN
     Indication: PAIN IN EXTREMITY
     Dosage: ONE 50 MG TAB IN THE MORNING AND TWO 50 MG TABS (EQUALLING 100 MG) AT NIGHT
     Route: 048
  11. LIDOCAINE. [Concomitant]
     Active Substance: LIDOCAINE
     Indication: MUSCULOSKELETAL PAIN
     Dosage: ON 12 HOURS AND OFF 12 HOURS AS NEEDED
     Route: 062
  12. HUMALOG [Concomitant]
     Active Substance: INSULIN LISPRO
     Indication: DIABETES MELLITUS
     Dosage: 7 UNITS OR GREATER 3 TIMES A DAY BEFORE MEALS
     Route: 058
  13. ZOFRAN [Concomitant]
     Active Substance: ONDANSETRON HYDROCHLORIDE
     Indication: NAUSEA
     Route: 048
  14. TRAMADOL. [Concomitant]
     Active Substance: TRAMADOL
     Indication: PAIN
     Dosage: 50 MG TWO TIMES A DAY, ON AND OFF
     Route: 048
  15. LIDOCAINE. [Concomitant]
     Active Substance: LIDOCAINE
     Indication: PAIN IN EXTREMITY
     Dosage: ON 12 HOURS AND OFF 12 HOURS AS NEEDED
     Route: 062
  16. TOUJEO INSULIN [Concomitant]
     Indication: DIABETES MELLITUS
     Dosage: BETWEEN 12 AND 14 UNITS AT NIGHT
     Route: 058
     Dates: start: 2015
  17. ALPRAZOLAM. [Concomitant]
     Active Substance: ALPRAZOLAM
     Indication: FEELING ABNORMAL
     Dosage: 0.5 MG 3 TIMES A DAY BUT ONLY TAKES AT BEDTIME
     Route: 048
     Dates: start: 2015
  18. LYRICA [Concomitant]
     Active Substance: PREGABALIN
     Indication: DIABETIC FOOT
     Dosage: ONE 50 MG TAB IN THE MORNING AND TWO 50 MG TABS (EQUALLING 100 MG) AT NIGHT
     Route: 048
  19. VITAMIN D OTC [Concomitant]
     Indication: PRODUCT USED FOR UNKNOWN INDICATION
     Route: 048
  20. QUININE SULFATE. [Concomitant]
     Active Substance: QUININE SULFATE
     Indication: MUSCLE SPASMS
     Route: 048
  21. ASPIRIN OTC [Concomitant]
     Indication: CEREBROVASCULAR ACCIDENT
  22. HYOSCYAMINE. [Concomitant]
     Active Substance: HYOSCYAMINE
     Indication: IRRITABLE BOWEL SYNDROME
     Route: 060
  23. QUININE SULFATE. [Concomitant]
     Active Substance: QUININE SULFATE
     Indication: MUSCLE SPASMS
     Route: 048
  24. LIPITOR [Concomitant]
     Active Substance: ATORVASTATIN CALCIUM
     Indication: BLOOD CHOLESTEROL INCREASED
     Route: 048
  25. IMODIUM OTC [Concomitant]
     Indication: IRRITABLE BOWEL SYNDROME
     Dosage: 2.0MG AS REQUIRED
     Route: 048

REACTIONS (3)
  - Anxiety [Unknown]
  - Blood glucose increased [Unknown]
  - Pollakiuria [Unknown]

NARRATIVE: CASE EVENT DATE: 20170228
